FAERS Safety Report 5205927-9 (Version None)
Quarter: 2007Q1

REPORT INFORMATION
  Report Type: 
  Country: None (occurrence: None)
  Receive Date: 20070111
  Receipt Date: 20070102
  Transmission Date: 20070707
  Serious: Yes (Life-Threatening, Hospitalization, Other)
  Sender: FDA-Public Use
  Company Number: US-GLAXOSMITHKLINE-A0098239A

PATIENT
  Age: 48 Year
  Sex: Male
  Weight: 88.2 kg

DRUGS (14)
  1. ZIAGEN [Suspect]
     Indication: HIV INFECTION
     Dosage: 300MG TWICE PER DAY
     Route: 048
     Dates: start: 19990717, end: 19990726
  2. AGENERASE [Concomitant]
     Indication: HIV INFECTION
     Route: 048
     Dates: start: 19990711
  3. COMBIVIR [Concomitant]
     Indication: HIV INFECTION
     Route: 048
     Dates: start: 19990711
  4. BACTRIM [Concomitant]
     Route: 048
  5. PROZAC [Concomitant]
     Route: 048
  6. NEURONTIN [Concomitant]
     Route: 048
  7. ELAVIL [Concomitant]
     Route: 048
  8. DURAGESIC-100 [Concomitant]
  9. FORTOVASE [Concomitant]
     Indication: HIV INFECTION
     Route: 048
     Dates: start: 19981012, end: 19990717
  10. VIRACEPT [Concomitant]
     Indication: HIV INFECTION
     Route: 048
     Dates: start: 19981012, end: 19990717
  11. VIRAMUNE [Concomitant]
     Indication: HIV INFECTION
     Route: 048
     Dates: start: 19981012, end: 19990717
  12. VITAMIN B COMPOUND [Concomitant]
     Dates: start: 19971229
  13. CENTRUM [Concomitant]
     Route: 048
     Dates: start: 19971229
  14. FLUCONAZOLE [Concomitant]
     Route: 048
     Dates: start: 19971229

REACTIONS (18)
  - ARTHRALGIA [None]
  - CHILLS [None]
  - DECREASED APPETITE [None]
  - DERMATITIS EXFOLIATIVE [None]
  - DIARRHOEA [None]
  - DIZZINESS [None]
  - DRUG HYPERSENSITIVITY [None]
  - ERYTHEMA MULTIFORME [None]
  - HEADACHE [None]
  - HYPOTENSION [None]
  - MALAISE [None]
  - MYALGIA [None]
  - NAUSEA [None]
  - PLATELET COUNT DECREASED [None]
  - PRURITUS [None]
  - PYREXIA [None]
  - RASH SCARLATINIFORM [None]
  - TACHYCARDIA [None]
